FAERS Safety Report 20783969 (Version 1)
Quarter: 2022Q2

REPORT INFORMATION
  Report Type: Other
  Country: CN (occurrence: CN)
  Receive Date: 20220504
  Receipt Date: 20220504
  Transmission Date: 20220721
  Serious: Yes (Other)
  Sender: FDA-Public Use
  Company Number: CN-GE HEALTHCARE-2022CSU002813

PATIENT
  Age: 79 Year
  Sex: Male

DRUGS (3)
  1. OMNIPAQUE [Suspect]
     Active Substance: IOHEXOL
     Indication: Bile duct cancer
     Dosage: 300 MG, SINGLE
     Route: 041
     Dates: start: 20220410, end: 20220410
  2. OMNIPAQUE [Suspect]
     Active Substance: IOHEXOL
     Indication: Intraoperative care
     Dosage: 300 MG, SINGLE
     Route: 041
     Dates: start: 20220412, end: 20220412
  3. OMNIPAQUE [Suspect]
     Active Substance: IOHEXOL
     Dosage: 300 MG, SINGLE
     Route: 041
     Dates: start: 20220414, end: 20220414

REACTIONS (1)
  - Liver injury [Recovering/Resolving]

NARRATIVE: CASE EVENT DATE: 20220416
